FAERS Safety Report 8985593 (Version 1)
Quarter: 2012Q4

REPORT INFORMATION
  Report Type: Report from Study
  Country: ES (occurrence: ES)
  Receive Date: 20121226
  Receipt Date: 20121226
  Transmission Date: 20130627
  Serious: Yes (Other)
  Sender: FDA-Public Use
  Company Number: ES-TEVA-377594USA

PATIENT
  Age: 43 Year
  Sex: Female
  Weight: 70 kg

DRUGS (12)
  1. TREANDA [Suspect]
     Indication: NON-HODGKIN^S LYMPHOMA
     Route: 042
     Dates: start: 20121130, end: 20121201
  2. TREANDA [Suspect]
     Indication: STEM CELL TRANSPLANT
  3. VP-16 [Suspect]
     Indication: NON-HODGKIN^S LYMPHOMA
  4. VP-16 [Suspect]
     Indication: STEM CELL TRANSPLANT
  5. ARA-C [Suspect]
     Indication: NON-HODGKIN^S LYMPHOMA
  6. ARA-C [Suspect]
     Indication: STEM CELL TRANSPLANT
  7. MELPHALAN [Suspect]
     Indication: NON-HODGKIN^S LYMPHOMA
  8. MELPHALAN [Suspect]
     Indication: STEM CELL TRANSPLANT
  9. VANCOMYCIN [Concomitant]
     Indication: BACTERAEMIA
     Dosage: 1g/12 Hours
     Dates: start: 20121205, end: 20121205
  10. ACICLOVIR [Concomitant]
     Indication: PROPHYLAXIS
     Dosage: 800 mg/12 hours
     Dates: start: 20121130
  11. GRANISETRON [Concomitant]
     Indication: VOMITING
     Dosage: 1mg/24 hours
     Dates: start: 20121107
  12. HYDROCORTISONE [Concomitant]
     Indication: PREMEDICATION
     Dosage: 100 mg/24 hours
     Route: 042
     Dates: start: 20121207, end: 20121207

REACTIONS (3)
  - Renal failure acute [Unknown]
  - Device related infection [Unknown]
  - Staphylococcal infection [Unknown]
